FAERS Safety Report 7537130-1 (Version None)
Quarter: 2011Q2

REPORT INFORMATION
  Report Type: 
  Country: None (occurrence: None)
  Receive Date: 20110609
  Receipt Date: 20110603
  Transmission Date: 20111010
  Serious: Yes (Death, Hospitalization)
  Sender: FDA-Public Use
  Company Number: PHHY2011US17805

PATIENT
  Sex: Male
  Weight: 49 kg

DRUGS (2)
  1. EXJADE [Suspect]
     Indication: CHRONIC LYMPHOCYTIC LEUKAEMIA
     Dosage: 2000 MG, DAILY
     Route: 048
     Dates: start: 20081007
  2. EXJADE [Suspect]
     Dosage: 2000 MG, DAILY
     Route: 048
     Dates: start: 20100720

REACTIONS (4)
  - NEOPLASM MALIGNANT [None]
  - BACTERAEMIA [None]
  - PYREXIA [None]
  - NEOPLASM PROGRESSION [None]
